FAERS Safety Report 4964287-9 (Version None)
Quarter: 2006Q2

REPORT INFORMATION
  Report Type: 
  Country: None (occurrence: None)
  Receive Date: 20060406
  Receipt Date: 20051121
  Transmission Date: 20061013
  Serious: Yes (Death)
  Sender: FDA-Public Use
  Company Number: PHEH2005US12779

PATIENT
  Age: 42 Year
  Sex: Male

DRUGS (6)
  1. RISPERIDONE [Concomitant]
     Indication: SCHIZOPHRENIA
     Dosage: 50 MG, Q 2WEEKS
     Route: 030
     Dates: start: 20050720, end: 20051012
  2. PROLIXIN [Concomitant]
     Indication: SCHIZOPHRENIA
     Dosage: 5 MG, BID
     Route: 048
     Dates: start: 20050611, end: 20051012
  3. AMBIEN [Concomitant]
     Indication: INSOMNIA
     Dosage: 10 MG, QHS
     Route: 048
     Dates: start: 20050422, end: 20051012
  4. COGENTIN [Concomitant]
     Dosage: 2 MG, TID
     Route: 048
     Dates: start: 20050617, end: 20051012
  5. PROZAC [Concomitant]
     Indication: DEPRESSION
     Dosage: 20 MG, QD
     Route: 048
     Dates: start: 20050914, end: 20051012
  6. CLOZARIL [Suspect]
     Indication: SCHIZOPHRENIA
     Dosage: 200MG QAM, 500MG QHS
     Route: 048
     Dates: start: 20010101

REACTIONS (5)
  - ANTIPSYCHOTIC DRUG LEVEL INCREASED [None]
  - CONFUSIONAL STATE [None]
  - DRUG LEVEL INCREASED [None]
  - RESPIRATORY ARREST [None]
  - ROAD TRAFFIC ACCIDENT [None]
